FAERS Safety Report 9593777 (Version 1)
Quarter: 2013Q4

REPORT INFORMATION
  Report Type: Report from Study
  Country: US (occurrence: US)
  Receive Date: 20131004
  Receipt Date: 20131004
  Transmission Date: 20140711
  Serious: Yes (Other)
  Sender: FDA-Public Use
  Company Number: US-ALEXION-A201301745

PATIENT
  Age: 38 Year
  Sex: Female
  Weight: 85 kg

DRUGS (6)
  1. SOLIRIS [Suspect]
     Indication: HAEMOLYTIC URAEMIC SYNDROME
     Dosage: UNK
     Route: 042
     Dates: start: 20130410
  2. SOLIRIS [Suspect]
     Dosage: 1200 MG, Q2W
     Route: 042
     Dates: start: 20130508
  3. HYDRALAZINE [Concomitant]
  4. TOPROL [Concomitant]
  5. CLONIDINE [Concomitant]
  6. THYROID [Concomitant]

REACTIONS (4)
  - Packed red blood cell transfusion [Unknown]
  - Blood pressure fluctuation [Recovered/Resolved]
  - Chest pain [Recovered/Resolved]
  - Alopecia [Unknown]
